FAERS Safety Report 5400676-6 (Version None)
Quarter: 2007Q3

REPORT INFORMATION
  Report Type: 
  Country: None (occurrence: None)
  Receive Date: 20070730
  Receipt Date: 20070717
  Transmission Date: 20080115
  Serious: Yes (Hospitalization)
  Sender: FDA-Public Use
  Company Number: BR-ELI_LILLY_AND_COMPANY-BR200707005388

PATIENT
  Age: 83 Year
  Sex: Female

DRUGS (6)
  1. FORTEO [Suspect]
     Indication: OSTEOPOROSIS
     Dosage: 20 UG, DAILY (1/D)
     Route: 058
     Dates: end: 20070703
  2. MAREVAN [Concomitant]
     Indication: ANTICOAGULANT THERAPY
     Dosage: 5 MG, UNKNOWN
     Route: 065
  3. VERAPAMIL HYDROCHLORIDE [Concomitant]
     Indication: HYPERTENSION
     Dosage: UNK, UNKNOWN
     Route: 065
  4. NATRILIX SR [Concomitant]
     Indication: DIURETIC THERAPY
     Dosage: UNK, UNKNOWN
     Route: 065
  5. TRYPTANOL [Concomitant]
     Indication: ANTIDEPRESSANT THERAPY
     Dosage: 25 MG, UNKNOWN
     Route: 065
  6. NEULEPTIL [Concomitant]
     Dosage: 1 %, DAILY (1/D)
     Route: 065

REACTIONS (1)
  - ERYSIPELAS [None]
